FAERS Safety Report 8904240 (Version 4)
Quarter: 2013Q1

REPORT INFORMATION
  Report Type: Spontaneous
  Country: US (occurrence: US)
  Receive Date: 20121113
  Receipt Date: 20130201
  Transmission Date: 20140127
  Serious: Yes (Hospitalization)
  Sender: FDA-Public Use
  Company Number: PHEH2012US022315

PATIENT
  Sex: Female
  Weight: 71.21 kg

DRUGS (8)
  1. RECLAST [Suspect]
     Indication: OSTEOPOROSIS
     Dosage: UNK UKN, UNK
     Route: 042
     Dates: start: 20121023
  2. ROSUVASTATIN [Concomitant]
     Dosage: 1 DF, UNK
     Route: 048
  3. CALCIUM CARBONATE [Concomitant]
     Dosage: 1 DF, UNK
     Route: 048
  4. CARBIDOPA/LEVODOPA [Concomitant]
     Dosage: 1.5 DF, THREE TIMES A DAY
  5. VITAMIN D3 [Concomitant]
     Dosage: 1 DF, UNK
     Route: 048
  6. LOVAZA [Concomitant]
     Dosage: 2 DF, UNK
     Route: 048
  7. FLUTICASONE [Concomitant]
     Dosage: 2 DF, UNK
     Route: 045
  8. MULTI-VIT [Concomitant]
     Dosage: 1 DF, UNK
     Route: 048

REACTIONS (17)
  - Speech disorder [Recovered/Resolved]
  - Dysphagia [Recovered/Resolved]
  - Tremor [Recovered/Resolved]
  - Muscular weakness [Not Recovered/Not Resolved]
  - Dyskinesia [Recovered/Resolved]
  - Influenza like illness [Recovered/Resolved]
  - Pyrexia [Recovered/Resolved]
  - Asthenia [Recovered/Resolved]
  - Dehydration [Recovered/Resolved]
  - Blood calcium decreased [Unknown]
  - Blood creatine phosphokinase increased [Unknown]
  - Platelet count decreased [Unknown]
  - Neutrophil count increased [Unknown]
  - Lymphocyte count decreased [Unknown]
  - Blood glucose increased [Unknown]
  - Aspartate aminotransferase increased [Unknown]
  - Activated partial thromboplastin time shortened [Unknown]
